FAERS Safety Report 17831340 (Version 2)
Quarter: 2020Q2

REPORT INFORMATION
  Report Type: Spontaneous
  Country: GB (occurrence: GB)
  Receive Date: 20200528
  Receipt Date: 20200611
  Transmission Date: 20200714
  Serious: Yes (Hospitalization, Disabling)
  Sender: FDA-Public Use
  Company Number: GB-SUN PHARMACEUTICAL INDUSTRIES LTD-2020RR-248435

PATIENT
  Age: 40 Year
  Sex: Female
  Weight: 60.32 kg

DRUGS (5)
  1. CIPROFLOXACIN. [Suspect]
     Active Substance: CIPROFLOXACIN
     Indication: OTITIS EXTERNA
     Dosage: UNK
     Route: 048
     Dates: start: 20190923, end: 20191011
  2. SODIUM HYDROGEN CARBONATE [Concomitant]
     Active Substance: SODIUM BICARBONATE
     Indication: EAR PAIN
     Dosage: UNK
     Route: 065
     Dates: start: 20190904
  3. CIPRODEX [Suspect]
     Active Substance: CIPROFLOXACIN HYDROCHLORIDE\DEXAMETHASONE
     Indication: OTITIS EXTERNA
     Dosage: UNK
     Route: 065
     Dates: start: 20191007
  4. CLARITHROMYCIN. [Concomitant]
     Active Substance: CLARITHROMYCIN
     Indication: LABYRINTHITIS
     Dosage: UNK
     Route: 065
     Dates: start: 20190912
  5. ANTIBIOTICS [Concomitant]
     Active Substance: UNSPECIFIED INGREDIENT
     Indication: LABYRINTHITIS
     Dosage: UNK
     Route: 065
     Dates: start: 20190912

REACTIONS (22)
  - Back pain [Unknown]
  - Muscular weakness [Not Recovered/Not Resolved]
  - Medication error [Unknown]
  - Myalgia [Not Recovered/Not Resolved]
  - Intervertebral disc protrusion [Not Recovered/Not Resolved]
  - Small fibre neuropathy [Not Recovered/Not Resolved]
  - Nerve injury [Not Recovered/Not Resolved]
  - Condition aggravated [Unknown]
  - Panic attack [Unknown]
  - Muscle twitching [Not Recovered/Not Resolved]
  - Sensitive skin [Unknown]
  - Anxiety [Not Recovered/Not Resolved]
  - Neuralgia [Unknown]
  - Irritability [Unknown]
  - Tendonitis [Not Recovered/Not Resolved]
  - Dyspepsia [Not Recovered/Not Resolved]
  - Hypoaesthesia [Not Recovered/Not Resolved]
  - Tearfulness [Unknown]
  - Pain in extremity [Not Recovered/Not Resolved]
  - Burning sensation [Unknown]
  - Paraesthesia [Not Recovered/Not Resolved]
  - Toxicity to various agents [Unknown]

NARRATIVE: CASE EVENT DATE: 20190925
